FAERS Safety Report 10196643 (Version 8)
Quarter: 2014Q3

REPORT INFORMATION
  Report Type: Spontaneous
  Country: LT (occurrence: None)
  Receive Date: 20140522
  Receipt Date: 20140829
  Transmission Date: 20150326
  Serious: Yes (Death, Life-Threatening, Hospitalization)
  Sender: FDA-Public Use
  Company Number: 2014MPI00565

PATIENT
  Age: 40 Year
  Sex: Male
  Weight: 67 kg

DRUGS (1)
  1. BRENTUXIMAB VEDOTIN (BRENTUXIMAB VEDOTIN) INJECTION [Suspect]
     Active Substance: BRENTUXIMAB VEDOTIN
     Indication: HODGKIN^S DISEASE
     Dosage: 1.8 MG/KG, Q21D, INTRAVENOUS
     Route: 042
     Dates: start: 20140423, end: 20140508

REACTIONS (10)
  - Electrolyte imbalance [None]
  - Pulmonary tuberculosis [None]
  - Pancytopenia [None]
  - Hypochloraemia [None]
  - Hyponatraemia [None]
  - Acute respiratory failure [None]
  - Multi-organ failure [None]
  - Hypomagnesaemia [None]
  - Pulmonary granuloma [None]
  - Pneumothorax spontaneous [None]

NARRATIVE: CASE EVENT DATE: 20140507
